FAERS Safety Report 5910936-8 (Version None)
Quarter: 2008Q4

REPORT INFORMATION
  Report Type: 
  Country: None (occurrence: None)
  Receive Date: 20081007
  Receipt Date: 20080714
  Transmission Date: 20090506
  Serious: No
  Sender: FDA-Public Use
  Company Number: US-ASTRAZENECA-2008UW14018

PATIENT
  Sex: Female

DRUGS (1)
  1. ARIMIDEX [Suspect]
     Indication: BREAST CANCER
     Route: 048

REACTIONS (6)
  - ARTHRALGIA [None]
  - ECZEMA [None]
  - FALL [None]
  - LYMPHOEDEMA [None]
  - PAIN IN EXTREMITY [None]
  - TOOTHACHE [None]
